FAERS Safety Report 4831166-7 (Version None)
Quarter: 2005Q4

REPORT INFORMATION
  Report Type: 
  Country: None (occurrence: None)
  Receive Date: 20051114
  Receipt Date: 20051031
  Transmission Date: 20060501
  Serious: Yes (Hospitalization)
  Sender: FDA-Public Use
  Company Number: 2005147070

PATIENT
  Age: 51 Year
  Sex: Female

DRUGS (2)
  1. PROVERA [Suspect]
     Indication: MENOPAUSAL SYMPTOMS
     Dosage: 2.5 MG (2.5 MG, DAILY), ORAL
     Route: 048
     Dates: start: 20051007, end: 20051013
  2. PREMARIN [Suspect]
     Indication: MENOPAUSAL SYMPTOMS
     Dosage: 0.625 MG (0.625 MG, DAILY), ORAL
     Route: 048
     Dates: start: 20051007, end: 20051013

REACTIONS (2)
  - DRUG HYPERSENSITIVITY [None]
  - HEPATITIS FULMINANT [None]
